FAERS Safety Report 14115231 (Version 1)
Quarter: 2017Q4

REPORT INFORMATION
  Report Type: Spontaneous
  Country: US (occurrence: US)
  Receive Date: 20171023
  Receipt Date: 20171023
  Transmission Date: 20180321
  Serious: Yes (Other)
  Sender: FDA-Public Use
  Company Number: US-INTERCEPT-PMOCA2016000273

PATIENT

DRUGS (6)
  1. UDCA [Concomitant]
     Active Substance: URSODIOL
  2. BABY ASPIRIN [Concomitant]
     Active Substance: ASPIRIN
  3. MIRALAX [Concomitant]
     Active Substance: POLYETHYLENE GLYCOL 3350
  4. VITAMIN D                          /00107901/ [Concomitant]
     Active Substance: ERGOCALCIFEROL
  5. PRALUENT [Suspect]
     Active Substance: ALIROCUMAB
     Dosage: UNK
     Dates: start: 201610, end: 2017
  6. OCALIVA [Suspect]
     Active Substance: OBETICHOLIC ACID
     Indication: BILIARY CIRRHOSIS PRIMARY
     Dosage: 5 MG, QD
     Route: 048
     Dates: start: 20161115, end: 20170115

REACTIONS (5)
  - Blood bilirubin increased [Unknown]
  - Pruritus generalised [Recovering/Resolving]
  - Jaundice [Recovering/Resolving]
  - Lethargy [Recovering/Resolving]
  - Blood alkaline phosphatase increased [Unknown]

NARRATIVE: CASE EVENT DATE: 20161124
